FAERS Safety Report 17437279 (Version 1)
Quarter: 2020Q1

REPORT INFORMATION
  Report Type: Spontaneous
  Country: FR (occurrence: FR)
  Receive Date: 20200219
  Receipt Date: 20200219
  Transmission Date: 20200409
  Serious: Yes (Other)
  Sender: FDA-Public Use
  Company Number: FR-009507513-2002FRA006385

PATIENT
  Age: 28 Year
  Sex: Female

DRUGS (1)
  1. NEXPLANON [Suspect]
     Active Substance: ETONOGESTREL
     Indication: CONTRACEPTION
     Dosage: 68 MILLIGRAM, IMPLANT FOR SUCUTANEOUS USE
     Route: 058
     Dates: start: 201707, end: 20200117

REACTIONS (2)
  - Drug ineffective [Recovered/Resolved with Sequelae]
  - Pregnancy with implant contraceptive [Recovered/Resolved with Sequelae]

NARRATIVE: CASE EVENT DATE: 201911
